FAERS Safety Report 13421898 (Version 2)
Quarter: 2017Q3

REPORT INFORMATION
  Report Type: Spontaneous
  Country: US (occurrence: US)
  Receive Date: 20170410
  Receipt Date: 20170717
  Transmission Date: 20171127
  Serious: No
  Sender: FDA-Public Use
  Company Number: US-PFIZER INC-2017153422

PATIENT
  Age: 77 Year
  Sex: Male
  Weight: 73 kg

DRUGS (6)
  1. DONEPEZIL. [Concomitant]
     Active Substance: DONEPEZIL
     Dosage: 10 MG, 1X/DAY (IN EVENING)
     Route: 048
  2. PRISTIQ EXTENDED-RELEASE [Suspect]
     Active Substance: DESVENLAFAXINE SUCCINATE
     Indication: ANXIETY
     Dosage: 25 MG, 1X/DAY, ^ONE A DAY IN THE MORNING^
     Route: 048
     Dates: start: 2017, end: 2017
  3. PRISTIQ EXTENDED-RELEASE [Suspect]
     Active Substance: DESVENLAFAXINE SUCCINATE
     Indication: DEPRESSION
     Dosage: 50 MG, 1X/DAY (PRISTIQ TAKEN IN MORNING)
     Route: 048
     Dates: start: 2017
  4. ASPIRIN (E.C.) [Concomitant]
     Active Substance: ASPIRIN
  5. ZOLPIDEM [Concomitant]
     Active Substance: ZOLPIDEM\ZOLPIDEM TARTRATE
  6. DONEPEZIL. [Concomitant]
     Active Substance: DONEPEZIL
     Indication: DEMENTIA ALZHEIMER^S TYPE
     Dosage: 10 MG, 1X/DAY, ^ONE A DAY AT NIGHT^
     Route: 048
     Dates: start: 201606, end: 20170625

REACTIONS (1)
  - Vitamin B6 increased [Unknown]

NARRATIVE: CASE EVENT DATE: 201702
